FAERS Safety Report 7321653-4 (Version None)
Quarter: 2011Q1

REPORT INFORMATION
  Report Type: 
  Country: None (occurrence: None)
  Receive Date: 20110228
  Receipt Date: 20101117
  Transmission Date: 20110831
  Serious: No
  Sender: FDA-Public Use
  Company Number: A0894327A

PATIENT
  Sex: Male

DRUGS (1)
  1. VALTREX [Suspect]
     Dosage: 1G UNKNOWN
     Route: 065
     Dates: start: 20060221

REACTIONS (2)
  - TOOTHACHE [None]
  - OEDEMA MOUTH [None]
